FAERS Safety Report 25085894 (Version 1)
Quarter: 2025Q1

REPORT INFORMATION
  Report Type: Spontaneous
  Country: IT (occurrence: None)
  Receive Date: 20250316
  Receipt Date: 20250316
  Transmission Date: 20250409
  Serious: Yes (Other)
  Sender: FDA-CTU
  Company Number: None

PATIENT
  Age: 67 Year
  Sex: Male
  Weight: 93 kg

DRUGS (7)
  1. ENTRESTO [Suspect]
     Active Substance: SACUBITRIL\VALSARTAN
     Indication: Cardiac failure
     Dosage: OTHER QUANTITY : 1 TABLET(S);?FREQUENCY : TWICE A DAY;?
     Route: 048
     Dates: start: 20250218, end: 20250312
  2. BISOPROLOL [Concomitant]
     Active Substance: BISOPROLOL
  3. FUROSEMIDE [Concomitant]
     Active Substance: FUROSEMIDE
  4. MESALAMINE [Concomitant]
     Active Substance: MESALAMINE
  5. ROSUVASTATIN [Concomitant]
     Active Substance: ROSUVASTATIN
  6. TAMSULOSIN [Concomitant]
     Active Substance: TAMSULOSIN
  7. SERENOA REPENS WHOLE [Concomitant]
     Active Substance: SERENOA REPENS WHOLE

REACTIONS (3)
  - Dyspnoea [None]
  - Cough [None]
  - Pruritus [None]

NARRATIVE: CASE EVENT DATE: 20250218
